FAERS Safety Report 16089314 (Version 2)
Quarter: 2019Q1

REPORT INFORMATION
  Report Type: Spontaneous
  Country: BE (occurrence: BE)
  Receive Date: 20190319
  Receipt Date: 20190327
  Transmission Date: 20190418
  Serious: Yes (Death, Other)
  Sender: FDA-Public Use
  Company Number: BE-009507513-1903BEL005937

PATIENT
  Age: 65 Year
  Sex: Male

DRUGS (3)
  1. PLATINUM [Concomitant]
     Active Substance: PLATINUM
     Dosage: UNK UNK, CYCLICAL
     Dates: start: 20190123
  2. PEMETREXED DISODIUM [Concomitant]
     Active Substance: PEMETREXED DISODIUM
     Dosage: UNK UNK, CYCLICAL
     Dates: start: 20190123
  3. KEYTRUDA [Suspect]
     Active Substance: PEMBROLIZUMAB
     Dosage: UNK UNK, CYCLICAL
     Dates: start: 20190123

REACTIONS (4)
  - Acute respiratory failure [Unknown]
  - Pulmonary embolism [Unknown]
  - Malignant neoplasm progression [Unknown]
  - Sudden death [Fatal]

NARRATIVE: CASE EVENT DATE: 2019
